FAERS Safety Report 5610535-1 (Version None)
Quarter: 2008Q1

REPORT INFORMATION
  Report Type: 
  Country: None (occurrence: None)
  Receive Date: 20080201
  Receipt Date: 20080116
  Transmission Date: 20080703
  Serious: Yes (Other)
  Sender: FDA-Public Use
  Company Number: BR-BAYER-BR-2007-042047

PATIENT
  Age: 25 Year
  Sex: Female
  Weight: 64 kg

DRUGS (5)
  1. YAZ [Suspect]
     Indication: ORAL CONTRACEPTION
     Route: 048
     Dates: start: 20071001, end: 20071101
  2. YAZ [Suspect]
     Route: 048
     Dates: start: 20071201, end: 20071201
  3. YASMIN [Suspect]
     Indication: ACNE
     Route: 048
     Dates: start: 20080101
  4. YASMIN [Suspect]
     Route: 048
     Dates: end: 20070701
  5. MEASLES AND RUBELLA VACCINE [Concomitant]
     Indication: PROPHYLAXIS
     Dates: start: 20080109, end: 20080109

REACTIONS (13)
  - ACNE [None]
  - DIARRHOEA [None]
  - DRUG ADMINISTRATION ERROR [None]
  - DRUG DOSE OMISSION [None]
  - DRUG INEFFECTIVE [None]
  - FEELING COLD [None]
  - HYPERTENSION [None]
  - HYPOTENSION [None]
  - LOSS OF CONSCIOUSNESS [None]
  - MENSTRUATION DELAYED [None]
  - NAUSEA [None]
  - SYNCOPE [None]
  - VARICELLA [None]
